FAERS Safety Report 10166507 (Version 1)
Quarter: 2014Q2

REPORT INFORMATION
  Report Type: Spontaneous
  Country: US (occurrence: None)
  Receive Date: 20140509
  Receipt Date: 20140509
  Transmission Date: 20141212
  Serious: No
  Sender: FDA-Public Use
  Company Number: None

PATIENT
  Age: 73 Year
  Sex: Male
  Weight: 106.8 kg

DRUGS (3)
  1. OLANZAPINE [Suspect]
     Indication: SCHIZOPHRENIA
     Dosage: QHS PO
     Route: 048
     Dates: start: 20140418, end: 20140424
  2. OLANZAPINE [Suspect]
     Indication: SCHIZOPHRENIA
     Dosage: 10 MG QHS PO
     Route: 048
     Dates: start: 20140424
  3. SIMVASTATIN [Concomitant]

REACTIONS (9)
  - Product quality issue [None]
  - Product substitution issue [None]
  - Drug intolerance [None]
  - Depressed mood [None]
  - Feeling abnormal [None]
  - Pain [None]
  - Nausea [None]
  - Dizziness [None]
  - Product formulation issue [None]
